FAERS Safety Report 7577770-7 (Version None)
Quarter: 2011Q2

REPORT INFORMATION
  Report Type: 
  Country: None (occurrence: None)
  Receive Date: 20110628
  Receipt Date: 20110614
  Transmission Date: 20111010
  Serious: Yes (Disabling, Other)
  Sender: FDA-Public Use
  Company Number: GB-ROCHE-759387

PATIENT
  Sex: Female
  Weight: 79 kg

DRUGS (10)
  1. ETANERCEPT [Concomitant]
     Route: 065
     Dates: start: 20080101, end: 20100101
  2. FOLIC ACID [Concomitant]
     Route: 065
  3. PREDNISOLONE [Concomitant]
     Route: 065
  4. ACTEMRA [Suspect]
     Route: 042
     Dates: start: 20101223, end: 20110126
  5. CALCICHEW D3 [Concomitant]
     Route: 065
  6. ACETAMINOPHEN WITH PROPOXYPHENE HCL TAB [Concomitant]
     Route: 065
  7. METHOTREXATE [Concomitant]
     Route: 065
     Dates: start: 19860101
  8. ACTEMRA [Suspect]
     Indication: RHEUMATOID ARTHRITIS
     Route: 042
     Dates: start: 20110501
  9. BUTRANS [Concomitant]
     Route: 065
  10. D-PENICILLAMINE [Concomitant]
     Route: 065

REACTIONS (5)
  - BLINDNESS TRANSIENT [None]
  - PUPILLARY DISORDER [None]
  - INTRAOCULAR PRESSURE INCREASED [None]
  - LENS DISORDER [None]
  - EYE PAIN [None]
